FAERS Safety Report 9167975 (Version 1)
Quarter: 2013Q1

REPORT INFORMATION
  Report Type: Spontaneous
  Country: US (occurrence: None)
  Receive Date: 20130307
  Receipt Date: 20130307
  Transmission Date: 20140127
  Serious: Yes (Death, Hospitalization, Other)
  Sender: FDA-Public Use
  Company Number: 2013034932

PATIENT
  Age: 30 Year
  Sex: Female

DRUGS (6)
  1. IMMUNE GLOBULIN HUMAN [Suspect]
     Indication: HISTIOCYTOSIS HAEMATOPHAGIC
     Route: 042
  2. HIGH DOSE STEROIDS (CORTICOSTEROIDS) [Suspect]
  3. VITAMIN K (MENADIONE) [Concomitant]
  4. GANCICLOVIR [Concomitant]
  5. AZATHIOPRINE [Concomitant]
  6. HYDROXYCHLOROQUINE [Concomitant]

REACTIONS (6)
  - General physical health deterioration [None]
  - Confusional state [None]
  - Pancreatitis necrotising [None]
  - Disseminated intravascular coagulation [None]
  - Intestinal ischaemia [None]
  - Peritoneal haemorrhage [None]
